FAERS Safety Report 11229967 (Version 1)
Quarter: 2015Q3

REPORT INFORMATION
  Report Type: Spontaneous
  Country: FR (occurrence: FR)
  Receive Date: 20150701
  Receipt Date: 20150701
  Transmission Date: 20151125
  Serious: Yes (Hospitalization, Other)
  Sender: FDA-Public Use
  Company Number: FR-GILEAD-2015-0160681

PATIENT
  Age: 73 Year
  Sex: Male

DRUGS (7)
  1. FENOFIBRATE. [Concomitant]
     Active Substance: FENOFIBRATE
  2. PANTOPRAZOLE SODIUM. [Concomitant]
     Active Substance: PANTOPRAZOLE SODIUM
  3. EUPRESSYL                          /00631801/ [Concomitant]
     Active Substance: URAPIDIL
  4. KARDEGIC [Concomitant]
     Active Substance: ASPIRIN LYSINE
  5. ZYDELIG [Suspect]
     Active Substance: IDELALISIB
     Indication: NON-HODGKIN^S LYMPHOMA
     Dosage: 300 MG, QD
     Route: 048
     Dates: start: 20141021, end: 20150221
  6. VALSARTAN/HYDROCHLOROTHIAZIDE BIOGARAN [Suspect]
     Active Substance: HYDROCHLOROTHIAZIDE\VALSARTAN
     Indication: PRODUCT USED FOR UNKNOWN INDICATION
     Dosage: 1 DF, UNK
     Route: 048
     Dates: end: 201502
  7. BACLOFENE [Concomitant]
     Active Substance: BACLOFEN

REACTIONS (3)
  - Diarrhoea [Recovered/Resolved]
  - Septic shock [Recovered/Resolved]
  - Lactic acidosis [Recovered/Resolved]

NARRATIVE: CASE EVENT DATE: 201502
